FAERS Safety Report 8267996-1 (Version None)
Quarter: 2012Q2

REPORT INFORMATION
  Report Type: 
  Country: None (occurrence: None)
  Receive Date: 20120404
  Receipt Date: 20120330
  Transmission Date: 20120825
  Serious: Yes (Other)
  Sender: FDA-Public Use
  Company Number: ACO_29769_2012

PATIENT
  Sex: Female

DRUGS (3)
  1. ATARAX	/00058401/  (HYDROXYZINE) [Concomitant]
  2. TIZANIDINE HCL [Suspect]
     Indication: PRODUCT USED FOR UNKNOWN INDICATION
     Dosage: 1 DF,
     Dates: start: 20120314
  3. PROPRAL (PROPRANOLOL HYDROCHLORIDE) [Concomitant]

REACTIONS (4)
  - BLOOD PRESSURE INCREASED [None]
  - BLOOD PRESSURE DECREASED [None]
  - DIZZINESS [None]
  - HEART RATE DECREASED [None]
